FAERS Safety Report 4650098-0 (Version None)
Quarter: 2005Q2

REPORT INFORMATION
  Report Type: 
  Country: None (occurrence: None)
  Receive Date: 20050428
  Receipt Date: 20040310
  Transmission Date: 20051028
  Serious: Yes (Life-Threatening, Hospitalization)
  Sender: FDA-Public Use
  Company Number: D01200400792

PATIENT
  Age: 63 Year
  Sex: Male

DRUGS (13)
  1. (SR57746 OR PLACEO) - CAPSULE- 1 MG [Suspect]
     Indication: CHEMOTHERAPY NEUROTOXICITY ATTENUATION
     Dosage: 1 MG QD, ORAL
     Route: 048
     Dates: start: 20031106, end: 20040302
  2. (SR57746 OR PLACEO) - CAPSULE- 1 MG [Suspect]
     Indication: COLORECTAL CANCER METASTATIC
     Dosage: 1 MG QD, ORAL
     Route: 048
     Dates: start: 20031106, end: 20040302
  3. (OXALIPLATIN ) - SOLUTION - 85 MG/M2 [Suspect]
     Dosage: 85 MG/M2 QW; INTRAVENOUS NOS
     Route: 042
     Dates: start: 20040301, end: 20040301
  4. FLUOROURACIL [Suspect]
     Dosage: 400 MG/M2 AS IV BOLUS THEN 600 MG/M2 AS 22 HOURS CONTINUOUS INFUSION DI-D2 Q2W; INTRAVENOUS NOS
     Route: 042
     Dates: start: 20040301, end: 20040302
  5. LEUCOVORIN CALCIUM [Suspect]
     Dosage: 200 MG/M2 AS 2 HOURS INFUSION ON D1-D2 Q2W; INTRAVENOUS NOS
     Route: 042
     Dates: start: 20040301, end: 20040302
  6. ESCITALOPRAM [Concomitant]
  7. THYROXINE (LEVOTHYROXINE) [Concomitant]
  8. CO-PROXAMOL [Concomitant]
  9. ONDANSETRON [Concomitant]
  10. DEXAMETHASONE [Concomitant]
  11. CHLORHEXIDINE [Concomitant]
  12. LOPERAMIDE HCL [Concomitant]
  13. LORAZEPAM [Concomitant]

REACTIONS (5)
  - BLADDER DISORDER [None]
  - GAMMA-GLUTAMYLTRANSFERASE INCREASED [None]
  - INTESTINAL PERFORATION [None]
  - LEUKOCYTOSIS [None]
  - NEUTROPHIL COUNT INCREASED [None]
